FAERS Safety Report 8939085 (Version 1)
Quarter: 2012Q4

REPORT INFORMATION
  Report Type: Report from Study
  Country: CA (occurrence: CA)
  Receive Date: 20121203
  Receipt Date: 20121203
  Transmission Date: 20130627
  Serious: Yes (Other)
  Sender: FDA-Public Use
  Company Number: CA-JNJFOC-20121111808

PATIENT
  Sex: Male
  Weight: 84 kg

DRUGS (6)
  1. REMICADE [Suspect]
     Indication: CROHN^S DISEASE
     Route: 042
     Dates: start: 20120926
  2. REMICADE [Suspect]
     Indication: CROHN^S DISEASE
     Route: 042
     Dates: start: 20121121
  3. REMICADE [Suspect]
     Indication: CROHN^S DISEASE
     Route: 042
     Dates: start: 201001
  4. REMICADE [Suspect]
     Indication: CROHN^S DISEASE
     Route: 042
     Dates: start: 200605, end: 20091214
  5. SOLUCORTEF [Concomitant]
     Indication: PREMEDICATION
     Route: 042
  6. VITAMINE [Concomitant]
     Indication: SELF-MEDICATION
     Route: 065

REACTIONS (2)
  - Surgery [Unknown]
  - Serum sickness [Recovered/Resolved]
